FAERS Safety Report 21812767 (Version 1)
Quarter: 2023Q1

REPORT INFORMATION
  Report Type: Spontaneous
  Country: US (occurrence: None)
  Receive Date: 20230101
  Receipt Date: 20230101
  Transmission Date: 20230418
  Serious: Yes (Disabling)
  Sender: FDA-Public Use
  Company Number: None

PATIENT
  Age: 34 Year
  Sex: Female
  Weight: 72 kg

DRUGS (2)
  1. CLONAZEPAM [Suspect]
     Active Substance: CLONAZEPAM
     Indication: Anxiety
     Dosage: OTHER QUANTITY : 30 TABLET(S);?FREQUENCY : TWICE A DAY;?
     Route: 048
     Dates: start: 20180215, end: 20200620
  2. Liothyronine .5mg Synthroid .75mcg [Concomitant]

REACTIONS (34)
  - Nervous system disorder [None]
  - Immunodeficiency [None]
  - Hypertension [None]
  - Vertigo [None]
  - Insomnia [None]
  - Head discomfort [None]
  - Panic attack [None]
  - Allergy to chemicals [None]
  - Hypoaesthesia [None]
  - Skin burning sensation [None]
  - Food intolerance [None]
  - Depersonalisation/derealisation disorder [None]
  - Feeling abnormal [None]
  - Amnesia [None]
  - Tinnitus [None]
  - Parosmia [None]
  - Rosacea [None]
  - Hypersensitivity [None]
  - Renal disorder [None]
  - Gallbladder disorder [None]
  - Liver disorder [None]
  - Hypovitaminosis [None]
  - Alopecia [None]
  - Dry skin [None]
  - Dry eye [None]
  - Hypothyroidism [None]
  - Insulin resistance [None]
  - Hyperacusis [None]
  - Formication [None]
  - Arthralgia [None]
  - Arthralgia [None]
  - Blood glucose fluctuation [None]
  - Weight increased [None]
  - Withdrawal syndrome [None]

NARRATIVE: CASE EVENT DATE: 20200520
